FAERS Safety Report 11466549 (Version 1)
Quarter: 2015Q3

REPORT INFORMATION
  Report Type: Report from Study
  Country: US (occurrence: US)
  Receive Date: 20150907
  Receipt Date: 20150907
  Transmission Date: 20151125
  Serious: Yes (Death, Congenital Anomaly)
  Sender: FDA-Public Use
  Company Number: US-PFIZER INC-2015286992

PATIENT

DRUGS (1)
  1. DILANTIN [Suspect]
     Active Substance: PHENYTOIN
     Indication: EPILEPSY
     Dosage: UNK
     Route: 064

REACTIONS (4)
  - Heart disease congenital [Unknown]
  - Cardiac arrest [Fatal]
  - Maternal exposure during pregnancy [Fatal]
  - Trisomy 21 [Unknown]
